FAERS Safety Report 6316125-X (Version None)
Quarter: 2009Q3

REPORT INFORMATION
  Report Type: 
  Country: None (occurrence: None)
  Receive Date: 20090820
  Receipt Date: 20090817
  Transmission Date: 20100115
  Serious: Yes (Hospitalization, Other)
  Sender: FDA-Public Use
  Company Number: DE-ASTRAZENECA-2008PK01467

PATIENT
  Age: 47 Year
  Sex: Female
  Weight: 92 kg

DRUGS (6)
  1. SEROQUEL [Suspect]
     Indication: BIPOLAR DISORDER
     Dosage: SINGLE DOSE DIFFERENT
     Route: 048
     Dates: start: 20070810, end: 20070909
  2. ORFIRIL LONG [Suspect]
     Indication: BIPOLAR DISORDER
     Dosage: SINGLE DOSE DIFFERENT
     Route: 048
     Dates: start: 20070808, end: 20070909
  3. BELOC ZOK [Concomitant]
     Indication: HYPERTENSION
     Route: 048
     Dates: start: 20070301, end: 20070807
  4. BELOC ZOK [Concomitant]
     Dosage: 95 MG
     Route: 048
     Dates: start: 20070808
  5. CIPRALEX [Concomitant]
     Indication: DEPRESSION
     Route: 048
     Dates: start: 20070821, end: 20070905
  6. CIPRALEX [Concomitant]
     Dosage: 18 MG
     Route: 048
     Dates: start: 20070907, end: 20070910

REACTIONS (1)
  - HEPATITIS [None]
